FAERS Safety Report 4750768-X (Version None)
Quarter: 2005Q3

REPORT INFORMATION
  Report Type: 
  Country: None (occurrence: None)
  Receive Date: 20050823
  Receipt Date: 20050309
  Transmission Date: 20060218
  Serious: Yes (Hospitalization, Disabling)
  Sender: FDA-Public Use
  Company Number: US-MERCK-0503USA01951

PATIENT
  Age: 51 Year
  Sex: Female
  Weight: 78 kg

DRUGS (13)
  1. VIOXX [Suspect]
     Indication: OSTEOARTHRITIS
     Route: 048
     Dates: start: 20010627, end: 20040930
  2. VIOXX [Suspect]
     Route: 048
     Dates: start: 20010627, end: 20040930
  3. VIOXX [Suspect]
     Indication: BONE PAIN
     Route: 048
     Dates: start: 20010627, end: 20040930
  4. VIOXX [Suspect]
     Route: 048
     Dates: start: 20010627, end: 20040930
  5. SYNTHROID [Concomitant]
     Route: 048
     Dates: start: 19960101
  6. PREMPRO [Concomitant]
     Route: 065
  7. CALTRATE [Concomitant]
     Route: 048
  8. TYLENOL [Concomitant]
     Route: 048
  9. REGLAN [Concomitant]
     Route: 048
  10. PROTONIX [Concomitant]
     Route: 048
  11. ASCORBIC ACID [Concomitant]
     Route: 065
  12. EQUAGESIC [Concomitant]
     Route: 065
  13. DARVOCET-N 100 [Concomitant]
     Route: 048

REACTIONS (23)
  - ACUTE CORONARY SYNDROME [None]
  - ANGINA PECTORIS [None]
  - ANGINA UNSTABLE [None]
  - BASAL CELL CARCINOMA [None]
  - BRONCHITIS [None]
  - CHEST PAIN [None]
  - COAGULOPATHY [None]
  - CORONARY ARTERY DISEASE [None]
  - DEPRESSION [None]
  - EAR INFECTION [None]
  - FOOT FRACTURE [None]
  - GENERALISED ANXIETY DISORDER [None]
  - HAEMATURIA [None]
  - HIATUS HERNIA [None]
  - HYPERLIPIDAEMIA [None]
  - MYOCARDIAL INFARCTION [None]
  - MYOCARDIAL ISCHAEMIA [None]
  - OEDEMA [None]
  - OESOPHAGITIS [None]
  - PAIN IN EXTREMITY [None]
  - PANIC ATTACK [None]
  - PULMONARY EMBOLISM [None]
  - SINUS TACHYCARDIA [None]
